FAERS Safety Report 7522099-6 (Version None)
Quarter: 2011Q2

REPORT INFORMATION
  Report Type: 
  Country: None (occurrence: None)
  Receive Date: 20110603
  Receipt Date: 20110601
  Transmission Date: 20111010
  Serious: Yes (Other)
  Sender: FDA-Public Use
  Company Number: JP-PFIZER INC-2011120277

PATIENT
  Age: 79 Year
  Sex: Male

DRUGS (7)
  1. NYSTATIN [Concomitant]
     Dosage: UNK
     Route: 048
  2. LYRICA [Suspect]
     Dosage: 225 MG, 2X/DAY
     Route: 048
     Dates: start: 20110514
  3. LYRICA [Suspect]
     Dosage: 150 MG, 2X/DAY
     Route: 048
     Dates: start: 20110430, end: 20110513
  4. AMLODIPINE BESILATE [Concomitant]
     Dosage: 5 MG, 1X/DAY
     Route: 048
  5. SENNA [Concomitant]
     Dosage: UNK
     Route: 048
  6. LYRICA [Suspect]
     Indication: PAIN
     Dosage: 75 MG, 2X/DAY
     Route: 048
     Dates: start: 20110427, end: 20110429
  7. MAGMITT [Concomitant]
     Dosage: UNK
     Route: 048

REACTIONS (3)
  - DYSPHONIA [None]
  - PYREXIA [None]
  - WHEEZING [None]
